FAERS Safety Report 17599674 (Version 1)
Quarter: 2020Q1

REPORT INFORMATION
  Report Type: Spontaneous
  Country: US (occurrence: US)
  Receive Date: 20200330
  Receipt Date: 20200330
  Transmission Date: 20200409
  Serious: Yes (Hospitalization)
  Sender: FDA-Public Use
  Company Number: None

PATIENT
  Age: 33 Year

DRUGS (7)
  1. CYMBA LTA [Concomitant]
  2. HYDREA [Concomitant]
     Active Substance: HYDROXYUREA
  3. FOLIC ACID. [Concomitant]
     Active Substance: FOLIC ACID
  4. MEDROXYPROGESTERONE [Concomitant]
     Active Substance: MEDROXYPROGESTERONE
  5. JADENU [Suspect]
     Active Substance: DEFERASIROX
     Indication: MINERAL DEFICIENCY
     Route: 048
  6. FLUTICASONE. [Concomitant]
     Active Substance: FLUTICASONE
  7. MORPHINE [Concomitant]
     Active Substance: MORPHINE

REACTIONS (3)
  - Therapy cessation [None]
  - Nausea [None]
  - Fatigue [None]

NARRATIVE: CASE EVENT DATE: 20200218
